FAERS Safety Report 18985044 (Version 1)
Quarter: 2021Q1

REPORT INFORMATION
  Report Type: Spontaneous
  Country: CH (occurrence: CH)
  Receive Date: 20210309
  Receipt Date: 20210309
  Transmission Date: 20210420
  Serious: Yes (Other)
  Sender: FDA-Public Use
  Company Number: CH-AMGEN-CHESP2021033990

PATIENT
  Age: 22 Year
  Sex: Female

DRUGS (2)
  1. PROLIA [Suspect]
     Active Substance: DENOSUMAB
     Indication: OSTEOPOROSIS
     Dosage: UNK
     Route: 065
  2. TERIPARATIDE [Concomitant]
     Active Substance: TERIPARATIDE
     Indication: OSTEOPOROSIS

REACTIONS (8)
  - Drug ineffective [Unknown]
  - Osteomalacia [Unknown]
  - Blood alkaline phosphatase increased [Unknown]
  - Fibroblast growth factor 23 increased [Recovered/Resolved]
  - Hypophosphataemia [Unknown]
  - Fracture [Unknown]
  - Injury [Unknown]
  - Phosphaturic mesenchymal tumour [Recovered/Resolved]

NARRATIVE: CASE EVENT DATE: 2015
